FAERS Safety Report 4359264-5 (Version None)
Quarter: 2004Q2

REPORT INFORMATION
  Report Type: 
  Country: None (occurrence: None)
  Receive Date: 20040518
  Receipt Date: 20040428
  Transmission Date: 20050107
  Serious: Yes (Hospitalization)
  Sender: FDA-Public Use
  Company Number: PHBS2004VE05921

PATIENT
  Age: 9 Year
  Sex: Female

DRUGS (2)
  1. ELIDEL [Suspect]
     Indication: DERMATITIS
     Dosage: UNK, BID
     Dates: end: 20040201
  2. ELIDEL [Suspect]
     Dosage: UNK, TID

REACTIONS (5)
  - DEPRESSION [None]
  - DERMATITIS [None]
  - DRUG INEFFECTIVE [None]
  - PRURITUS [None]
  - SKIN INFECTION [None]
